FAERS Safety Report 8481937-3 (Version None)
Quarter: 2012Q2

REPORT INFORMATION
  Report Type: 
  Country: None (occurrence: None)
  Receive Date: 20120402
  Receipt Date: 20120104
  Transmission Date: 20120825
  Serious: No
  Sender: FDA-Public Use
  Company Number: A-US2011-53731

PATIENT
  Age: 63 Year
  Sex: Female

DRUGS (4)
  1. TRACLEER [Suspect]
     Indication: PULMONARY ARTERIAL HYPERTENSION
     Dosage: 125 MG, QD, ORAL : 125 MG, BID, ORAL : 62.5 MG, BID, ORAL
     Route: 048
     Dates: end: 20111202
  2. TRACLEER [Suspect]
     Indication: PULMONARY ARTERIAL HYPERTENSION
     Dosage: 125 MG, QD, ORAL : 125 MG, BID, ORAL : 62.5 MG, BID, ORAL
     Route: 048
     Dates: start: 20110901, end: 20111115
  3. TRACLEER [Suspect]
     Indication: PULMONARY ARTERIAL HYPERTENSION
     Dosage: 125 MG, QD, ORAL : 125 MG, BID, ORAL : 62.5 MG, BID, ORAL
     Route: 048
     Dates: start: 20090507
  4. TRACLEER [Suspect]

REACTIONS (4)
  - ALANINE AMINOTRANSFERASE INCREASED [None]
  - LIVER FUNCTION TEST ABNORMAL [None]
  - ASPARTATE AMINOTRANSFERASE INCREASED [None]
  - BLOOD ALKALINE PHOSPHATASE INCREASED [None]
